FAERS Safety Report 11954066 (Version 2)
Quarter: 2016Q1

REPORT INFORMATION
  Report Type: Spontaneous
  Country: IT (occurrence: IT)
  Receive Date: 20160125
  Receipt Date: 20160208
  Transmission Date: 20160526
  Serious: Yes (Hospitalization)
  Sender: FDA-Public Use
  Company Number: IT-BIOGEN-2016BI00178087

PATIENT
  Age: 38 Year
  Sex: Female

DRUGS (2)
  1. OSSIBUTINA CLORIDRATO [Concomitant]
     Indication: PRODUCT USED FOR UNKNOWN INDICATION
     Route: 048
  2. TECFIDERA [Suspect]
     Active Substance: DIMETHYL FUMARATE
     Indication: MULTIPLE SCLEROSIS
     Route: 048
     Dates: start: 20150916, end: 20160116

REACTIONS (2)
  - Bacterial infection [Recovered/Resolved]
  - Device related sepsis [Recovered/Resolved]

NARRATIVE: CASE EVENT DATE: 20160110
